FAERS Safety Report 5727338-X (Version None)
Quarter: 2008Q2

REPORT INFORMATION
  Report Type: 
  Country: None (occurrence: None)
  Receive Date: 20080430
  Receipt Date: 20080416
  Transmission Date: 20081010
  Serious: Yes (Hospitalization)
  Sender: FDA-Public Use
  Company Number: 2008BI009909

PATIENT
  Age: 64 Year
  Sex: Female
  Weight: 62.5964 kg

DRUGS (2)
  1. AVONEX [Suspect]
     Indication: MULTIPLE SCLEROSIS
     Dosage: 30 UG;QW;IM
     Route: 042
  2. TYLENOL [Concomitant]

REACTIONS (7)
  - ABDOMINAL PAIN UPPER [None]
  - COLITIS [None]
  - DEHYDRATION [None]
  - DIARRHOEA [None]
  - ILL-DEFINED DISORDER [None]
  - MALAISE [None]
  - VIRAL INFECTION [None]
